FAERS Safety Report 5693313-7 (Version None)
Quarter: 2008Q2

REPORT INFORMATION
  Report Type: 
  Country: None (occurrence: None)
  Receive Date: 20080403
  Receipt Date: 20071203
  Transmission Date: 20081010
  Serious: No
  Sender: FDA-Public Use
  Company Number: US-BAYER-200716029NA

PATIENT
  Age: 34 Year
  Sex: Female
  Weight: 68 kg

DRUGS (3)
  1. MIRENA [Suspect]
     Indication: MENORRHAGIA
     Route: 015
     Dates: start: 20071012, end: 20071107
  2. METFORMIN HCL [Concomitant]
  3. GLYBURIDE [Concomitant]
     Indication: DRUG USE FOR UNKNOWN INDICATION

REACTIONS (2)
  - INTRA-UTERINE CONTRACEPTIVE DEVICE EXPELLED [None]
  - IUCD COMPLICATION [None]
